FAERS Safety Report 9014226 (Version 1)
Quarter: 2013Q1

REPORT INFORMATION
  Report Type: Spontaneous
  Country: FR (occurrence: FR)
  Receive Date: 20130115
  Receipt Date: 20130115
  Transmission Date: 20140127
  Serious: Yes (Hospitalization)
  Sender: FDA-Public Use
  Company Number: FR-ABBOTT-13P-056-1036075-00

PATIENT
  Age: 19 Month
  Sex: Female

DRUGS (6)
  1. DEPAKINE [Suspect]
     Indication: EPILEPSY
     Route: 048
     Dates: start: 20120730, end: 20120802
  2. NEOCATE [Concomitant]
     Indication: PRODUCT USED FOR UNKNOWN INDICATION
  3. URBANYL [Concomitant]
     Indication: PRODUCT USED FOR UNKNOWN INDICATION
  4. RENITEC [Concomitant]
     Indication: PRODUCT USED FOR UNKNOWN INDICATION
  5. UVESTEROL [Concomitant]
     Indication: PRODUCT USED FOR UNKNOWN INDICATION
  6. TOBRAMYCIN [Concomitant]
     Indication: PRODUCT USED FOR UNKNOWN INDICATION

REACTIONS (5)
  - Renal failure [Recovered/Resolved]
  - Accidental overdose [Unknown]
  - Drug dispensing error [Unknown]
  - Somnolence [Recovered/Resolved]
  - Tremor [Recovered/Resolved]
